FAERS Safety Report 9608314 (Version 2)
Quarter: 2013Q4

REPORT INFORMATION
  Report Type: Spontaneous
  Country: US (occurrence: US)
  Receive Date: 20131009
  Receipt Date: 20131009
  Transmission Date: 20140711
  Serious: Yes (Hospitalization, Other)
  Sender: FDA-Public Use
  Company Number: US-ABBVIE-12P-163-1005977-00

PATIENT
  Age: 17 Year
  Sex: Female
  Weight: 45.6 kg

DRUGS (17)
  1. HYDROCODONE/ACETAMINOPHEN [Suspect]
     Indication: PRODUCT USED FOR UNKNOWN INDICATION
  2. VELCADE [Suspect]
     Indication: ACUTE MYELOID LEUKAEMIA
     Dosage: 1 MG/M2, CYCLIC, IV BOLUS
  3. VELCADE [Suspect]
     Dosage: 1.3 MG/M2, CYCLIC, IV BOLUS
     Dates: start: 20120609, end: 20120925
  4. CYTARABINE [Suspect]
     Indication: ACUTE MYELOID LEUKAEMIA
     Dosage: 1000 MG/M2, CYCLIC
     Route: 042
     Dates: start: 20120918, end: 20120922
  5. CYTARABINE [Suspect]
     Dosage: CYCLIC
     Route: 037
     Dates: start: 20120609, end: 20120922
  6. CYTARABINE [Suspect]
     Dosage: CYCLIC
     Route: 037
     Dates: start: 20120609, end: 20120922
  7. DAUNORUBICIN HYDROCHLORIDE [Suspect]
     Dosage: 50 MG/M2, CYCLIC
     Route: 042
     Dates: start: 20120609, end: 20120613
  8. ETOPOSIDE [Suspect]
     Indication: ACUTE MYELOID LEUKAEMIA
     Dosage: 150 MG/M2, CYCLIC
     Route: 042
     Dates: start: 20120909, end: 20120922
  9. ETOPOSIDE [Suspect]
     Dosage: 100 MG/M2, CYCLIC
     Route: 042
     Dates: start: 20120609, end: 20120922
  10. DOXORUBICIN [Suspect]
     Indication: ACUTE MYELOID LEUKAEMIA
     Dosage: 50 UNK
     Route: 042
  11. DEXAMETHASONE [Suspect]
     Indication: PRODUCT USED FOR UNKNOWN INDICATION
     Dosage: CYCLIC
     Route: 042
  12. LEVOFLOXACINE [Suspect]
     Indication: PRODUCT USED FOR UNKNOWN INDICATION
  13. DIPHENHYDRAMINE [Suspect]
     Indication: PRODUCT USED FOR UNKNOWN INDICATION
  14. METRONIDAZOLE [Suspect]
     Indication: PRODUCT USED FOR UNKNOWN INDICATION
  15. LORAZEPAM [Suspect]
     Indication: PRODUCT USED FOR UNKNOWN INDICATION
  16. VORICONAZOLE [Suspect]
     Indication: PRODUCT USED FOR UNKNOWN INDICATION
  17. HYDROMORPHONE HCL [Suspect]
     Indication: PRODUCT USED FOR UNKNOWN INDICATION

REACTIONS (11)
  - Hypokalaemia [Recovering/Resolving]
  - Hypotension [Recovering/Resolving]
  - Blood bilirubin increased [Unknown]
  - Leukoencephalopathy [Recovered/Resolved]
  - Adrenal insufficiency [Recovering/Resolving]
  - Clostridium difficile colitis [Unknown]
  - Vasodilatation [Unknown]
  - Skin exfoliation [Unknown]
  - Mental status changes [Unknown]
  - Convulsion [Recovered/Resolved]
  - Decreased appetite [Unknown]
